FAERS Safety Report 10551255 (Version 1)
Quarter: 2014Q4

REPORT INFORMATION
  Report Type: Spontaneous
  Country: US (occurrence: None)
  Receive Date: 20141028
  Receipt Date: 20141028
  Transmission Date: 20150529
  Serious: No
  Sender: FDA-Public Use
  Company Number: None

PATIENT
  Age: 31 Year
  Sex: Male
  Weight: 81.65 kg

DRUGS (1)
  1. DULEXETINE-GENERIC CYMBALTA [Suspect]
     Active Substance: DULOXETINE HYDROCHLORIDE
     Indication: DEPRESSION
     Dosage: 2 PILLS DAILY ONE IN MORNING AND ONE AT NIGHT BY MOUTH 7 YEARS AGO  160 MG, 180 MG
     Route: 048

REACTIONS (6)
  - Impaired work ability [None]
  - Drug ineffective [None]
  - Economic problem [None]
  - Paraesthesia [None]
  - Drug withdrawal syndrome [None]
  - Feeling abnormal [None]
